FAERS Safety Report 8553408-7 (Version None)
Quarter: 2012Q3

REPORT INFORMATION
  Report Type: 
  Country: None (occurrence: None)
  Receive Date: 20120731
  Receipt Date: 20120720
  Transmission Date: 20120928
  Serious: Yes (Hospitalization)
  Sender: FDA-Public Use
  Company Number: AR-ROCHE-1091850

PATIENT
  Sex: Female

DRUGS (1)
  1. LUCENTIS [Suspect]
     Indication: MACULOPATHY
     Dosage: 1DF,QMO
     Route: 050
     Dates: start: 20110101

REACTIONS (3)
  - DIZZINESS [None]
  - FALL [None]
  - COAGULOPATHY [None]
